FAERS Safety Report 8111170-6 (Version None)
Quarter: 2012Q1

REPORT INFORMATION
  Report Type: 
  Country: None (occurrence: None)
  Receive Date: 20120203
  Receipt Date: 20110523
  Transmission Date: 20120608
  Serious: No
  Sender: FDA-Public Use
  Company Number: US-GLAXOSMITHKLINE-A0929753A

PATIENT
  Sex: Male

DRUGS (2)
  1. LAMICTAL [Suspect]
     Route: 065
  2. LAMOTRIGINE [Suspect]
     Dosage: 200MGD PER DAY
     Route: 065

REACTIONS (2)
  - SKIN INDURATION [None]
  - RASH [None]
